FAERS Safety Report 5892656-1 (Version None)
Quarter: 2008Q3

REPORT INFORMATION
  Report Type: 
  Country: None (occurrence: None)
  Receive Date: 20080923
  Receipt Date: 20080915
  Transmission Date: 20090109
  Serious: Yes (Other)
  Sender: FDA-Public Use
  Company Number: PHHY2008BR21611

PATIENT
  Age: 58 Year
  Sex: Male

DRUGS (6)
  1. STALEVO 100 [Suspect]
     Indication: PARKINSON'S DISEASE
     Dosage: 50/12.5/200 MG/DAILY
  2. STALEVO 100 [Suspect]
     Dosage: 100/25/200 MG DAILY
  3. STALEVO 100 [Suspect]
     Dosage: 150/37.5/200 MG
  4. STALEVO 100 [Suspect]
     Dosage: 3 TABLETS OF 50/12.5/200 MG
  5. SIFROL [Concomitant]
     Indication: PARKINSON'S DISEASE
  6. AMANTADINE [Concomitant]
     Indication: PARKINSON'S DISEASE

REACTIONS (4)
  - FAECAL INCONTINENCE [None]
  - HALLUCINATION [None]
  - OVERDOSE [None]
  - URINARY INCONTINENCE [None]
